FAERS Safety Report 24340440 (Version 2)
Quarter: 2025Q2

REPORT INFORMATION
  Report Type: Spontaneous
  Country: DE (occurrence: DE)
  Receive Date: 20240919
  Receipt Date: 20250603
  Transmission Date: 20250716
  Serious: Yes (Other)
  Sender: NOVARTIS
  Company Number: DE-002147023-NVSC2024DE185414

PATIENT
  Age: 73 Year
  Sex: Male

DRUGS (9)
  1. DABRAFENIB [Suspect]
     Active Substance: DABRAFENIB
     Indication: Thyroid cancer stage IV
     Dosage: 150 MG, BID
     Route: 065
  2. DABRAFENIB [Suspect]
     Active Substance: DABRAFENIB
     Indication: BRAF V600E mutation positive
     Dosage: 75 MG, BID
     Route: 065
  3. DABRAFENIB [Suspect]
     Active Substance: DABRAFENIB
     Indication: Anaplastic thyroid cancer
  4. TRAMETINIB [Suspect]
     Active Substance: TRAMETINIB
     Indication: BRAF V600E mutation positive
     Dosage: 4 MG, QD
     Route: 065
  5. TRAMETINIB [Suspect]
     Active Substance: TRAMETINIB
     Indication: Thyroid cancer stage IV
  6. TRAMETINIB [Suspect]
     Active Substance: TRAMETINIB
     Indication: Anaplastic thyroid cancer
  7. LENVATINIB [Concomitant]
     Active Substance: LENVATINIB
     Indication: Thyroid cancer stage IV
     Dosage: 20 MG, QD
     Route: 065
  8. LENVATINIB [Concomitant]
     Active Substance: LENVATINIB
     Indication: BRAF V600E mutation positive
  9. LENVATINIB [Concomitant]
     Active Substance: LENVATINIB
     Indication: Anaplastic thyroid cancer

REACTIONS (2)
  - Leukopenia [Unknown]
  - Pyrexia [Unknown]
